FAERS Safety Report 8808983 (Version 1)
Quarter: 2012Q4

REPORT INFORMATION
  Report Type: 
  Country: BE (occurrence: BE)
  Receive Date: 20120926
  Receipt Date: 20120926
  Transmission Date: 20130627
  Serious: Yes (Other)
  Sender: FDA-Public Use
  Company Number: BE-BRISTOL-MYERS SQUIBB COMPANY-16992794

PATIENT
  Age: 50 Year
  Sex: Male

DRUGS (2)
  1. SUSTIVA [Suspect]
     Dosage: 1 df= 20 * 600mg caps at once
     Route: 048
  2. KIVEXA [Concomitant]

REACTIONS (4)
  - Suicide attempt [Unknown]
  - Atrioventricular block [Unknown]
  - Vomiting [Unknown]
  - Overdose [Recovered/Resolved]
